FAERS Safety Report 6861056-X (Version None)
Quarter: 2010Q3

REPORT INFORMATION
  Report Type: 
  Country: None (occurrence: None)
  Receive Date: 20100720
  Receipt Date: 20100609
  Transmission Date: 20110219
  Serious: Yes (Other)
  Sender: FDA-Public Use
  Company Number: US-BAXTER-2010BH003715

PATIENT
  Age: 28 Year
  Sex: Female
  Weight: 79 kg

DRUGS (2)
  1. HEPARIN SODIUM [Suspect]
     Indication: THROMBOSIS
     Route: 058
     Dates: start: 20071212, end: 20071219
  2. PRENATAL VITAMINS [Concomitant]
     Indication: PRODUCT USED FOR UNKNOWN INDICATION
     Route: 065

REACTIONS (6)
  - ABDOMINAL PAIN UPPER [None]
  - DYSARTHRIA [None]
  - HAEMORRHAGE [None]
  - HEART RATE DECREASED [None]
  - HYPOTENSION [None]
  - VOMITING [None]
